FAERS Safety Report 6996352-9 (Version None)
Quarter: 2010Q3

REPORT INFORMATION
  Report Type: 
  Country: None (occurrence: None)
  Receive Date: 20100918
  Receipt Date: 20090128
  Transmission Date: 20110219
  Serious: No
  Sender: FDA-Public Use
  Company Number: US-WYE-H07961609

PATIENT
  Sex: Female
  Weight: 74.91 kg

DRUGS (2)
  1. PREMPRO [Suspect]
     Indication: MENOPAUSE
     Dosage: 0.45 MG/1.5 MG
     Route: 048
     Dates: start: 20081101
  2. LEXAPRO [Concomitant]
     Indication: PRODUCT USED FOR UNKNOWN INDICATION
     Dosage: 10 MG DAILY
     Route: 048

REACTIONS (1)
  - EPISTAXIS [None]
